FAERS Safety Report 9801679 (Version 2)
Quarter: 2014Q1

REPORT INFORMATION
  Report Type: Spontaneous
  Country: US (occurrence: US)
  Receive Date: 20140107
  Receipt Date: 20140113
  Transmission Date: 20141002
  Serious: Yes (Other)
  Sender: FDA-Public Use
  Company Number: PHHY2013US154215

PATIENT
  Age: 50 Year
  Sex: Male

DRUGS (3)
  1. FLUOXETINE [Suspect]
  2. PROPRANOLOL [Concomitant]
  3. HYDROCHLOROTHIAZIDE [Concomitant]

REACTIONS (3)
  - Myofascial pain syndrome [Unknown]
  - Pain in jaw [Unknown]
  - Bruxism [Unknown]
